FAERS Safety Report 25333578 (Version 1)
Quarter: 2025Q2

REPORT INFORMATION
  Report Type: Spontaneous
  Country: US (occurrence: US)
  Receive Date: 20250520
  Receipt Date: 20250520
  Transmission Date: 20250717
  Serious: No
  Sender: STALLERGENES
  Company Number: US-STALCOR-2025-AER-00813

PATIENT
  Age: 18 Year
  Sex: Male

DRUGS (3)
  1. PALFORZIA [Suspect]
     Active Substance: PEANUT
     Indication: Food allergy
     Dosage: 300MG: MAINTENANCE: MIX CONTENTS OF 1 SACHET WELL WITH SEMISOLID FOOD AS DIRECTED AND CONSUME ONCE D
     Route: 048
     Dates: start: 202412
  2. CREATINE MONOHYDRATE [Concomitant]
     Active Substance: CREATINE MONOHYDRATE
     Indication: Product used for unknown indication
  3. EPIPEN [Concomitant]
     Active Substance: EPINEPHRINE
     Indication: Prophylaxis

REACTIONS (1)
  - Urticaria [Recovered/Resolved]

NARRATIVE: CASE EVENT DATE: 20250301
